FAERS Safety Report 8106273-6 (Version None)
Quarter: 2012Q1

REPORT INFORMATION
  Report Type: 
  Country: None (occurrence: None)
  Receive Date: 20120130
  Receipt Date: 20120124
  Transmission Date: 20120608
  Serious: Yes (Hospitalization)
  Sender: FDA-Public Use
  Company Number: 2011SP057923

PATIENT
  Age: 22 Year
  Sex: Female

DRUGS (2)
  1. DOXYLIS (DOXYCYCLINE HYDROCHLORIDE) [Suspect]
     Indication: RASH
     Dosage: PO
     Route: 048
     Dates: start: 20110912, end: 20110924
  2. DESLORATADINE [Suspect]
     Indication: RASH
     Dosage: PO
     Route: 048
     Dates: start: 20110912, end: 20110918

REACTIONS (1)
  - STEVENS-JOHNSON SYNDROME [None]
